FAERS Safety Report 19123979 (Version 1)
Quarter: 2021Q2

REPORT INFORMATION
  Report Type: Spontaneous
  Country: BR (occurrence: BR)
  Receive Date: 20210412
  Receipt Date: 20210412
  Transmission Date: 20210717
  Serious: Yes (Other)
  Sender: FDA-Public Use
  Company Number: NVSC2021BR057180

PATIENT
  Sex: Male

DRUGS (3)
  1. COSENTYX [Suspect]
     Active Substance: SECUKINUMAB
     Indication: ANKYLOSING SPONDYLITIS
     Dosage: UNK
     Route: 065
  2. ISONIAZID. [Concomitant]
     Active Substance: ISONIAZID
     Indication: LATENT TUBERCULOSIS
     Dosage: 300 MG, QD
     Route: 048
     Dates: start: 20200908, end: 202011
  3. COSENTYX [Suspect]
     Active Substance: SECUKINUMAB
     Dosage: 1 DF, Q5W (AND AFTER 1 MONTH)
     Route: 058
     Dates: start: 20201008, end: 202103

REACTIONS (15)
  - Dermatitis acneiform [Not Recovered/Not Resolved]
  - Sacroiliitis [Unknown]
  - Arthritis [Unknown]
  - Transaminases increased [Unknown]
  - Synovitis [Unknown]
  - Liver disorder [Unknown]
  - Injury [Unknown]
  - Acne [Unknown]
  - Skin reaction [Unknown]
  - Osteitis [Unknown]
  - Back pain [Unknown]
  - Pruritus [Unknown]
  - Bone hypertrophy [Unknown]
  - Skin lesion [Unknown]
  - Pustule [Unknown]

NARRATIVE: CASE EVENT DATE: 20201009
